FAERS Safety Report 11841664 (Version 1)
Quarter: 2015Q4

REPORT INFORMATION
  Report Type: Spontaneous
  Country: US (occurrence: None)
  Receive Date: 20151215
  Receipt Date: 20151215
  Transmission Date: 20160305
  Serious: Yes (Other)
  Sender: FDA-Public Use
  Company Number: 002025529A

PATIENT
  Age: 43 Year
  Sex: Male

DRUGS (3)
  1. PROACTIV SKIN LIGHTENING [Concomitant]
     Active Substance: HYDROQUINONE
     Indication: ACNE
     Dosage: DERMAL
     Dates: start: 20151109, end: 20151110
  2. PROACTIV REPAIRING TREATMENT [Suspect]
     Active Substance: BENZOYL PEROXIDE
     Indication: ACNE
     Dosage: DERMAL
     Dates: start: 20151109, end: 20151110
  3. PROACTIV RENEWING CLEANSER [Suspect]
     Active Substance: BENZOYL PEROXIDE
     Indication: ACNE
     Dosage: DERMAL
     Dates: start: 20151109, end: 20151110

REACTIONS (3)
  - Erythema [None]
  - Pruritus [None]
  - Swelling face [None]

NARRATIVE: CASE EVENT DATE: 20151110
